FAERS Safety Report 7237562-5 (Version None)
Quarter: 2011Q1

REPORT INFORMATION
  Report Type: 
  Country: None (occurrence: None)
  Receive Date: 20110121
  Receipt Date: 20110117
  Transmission Date: 20110831
  Serious: Yes (Hospitalization)
  Sender: FDA-Public Use
  Company Number: IT-SANOFI-AVENTIS-2011SA002755

PATIENT
  Age: 83 Year
  Sex: Female

DRUGS (2)
  1. LANSOPRAZOLE [Concomitant]
     Route: 065
  2. PLAVIX [Suspect]
     Route: 048
     Dates: start: 20100430, end: 20100630

REACTIONS (2)
  - DIARRHOEA [None]
  - HYPOKALAEMIA [None]
